FAERS Safety Report 13113288 (Version 3)
Quarter: 2019Q1

REPORT INFORMATION
  Report Type: Report from Study
  Country: US (occurrence: US)
  Receive Date: 20170113
  Receipt Date: 20190217
  Transmission Date: 20190417
  Serious: Yes (Death, Life-Threatening, Hospitalization)
  Sender: FDA-Public Use
  Company Number: US-JNJFOC-20170106900

PATIENT
  Age: 38 Year
  Sex: Male
  Weight: 77.4 kg

DRUGS (2)
  1. APAP [Suspect]
     Active Substance: ACETAMINOPHEN
     Indication: HANGOVER
     Dosage: 3-4 PARACETAMOL 325 MG TABLETS EVERY 1-2 HOURS FOR 36 TO 48 HOURS
     Route: 048
  2. METFORMIN [Concomitant]
     Active Substance: METFORMIN HYDROCHLORIDE
     Indication: PRODUCT USED FOR UNKNOWN INDICATION
     Route: 065

REACTIONS (13)
  - Metabolic acidosis [Unknown]
  - Renal failure [Unknown]
  - Hypotension [Unknown]
  - Hyperammonaemia [Unknown]
  - Hyperlactacidaemia [Unknown]
  - Vomiting [Unknown]
  - Encephalopathy [Unknown]
  - Gastritis [Unknown]
  - Overdose [Fatal]
  - Shock [Fatal]
  - Acute hepatic failure [Fatal]
  - Pancreatitis [Fatal]
  - Abdominal pain [Unknown]

NARRATIVE: CASE EVENT DATE: 20170108
